FAERS Safety Report 4310952-6 (Version None)
Quarter: 2004Q1

REPORT INFORMATION
  Report Type: 
  Country: None (occurrence: None)
  Receive Date: 20040302
  Receipt Date: 20040219
  Transmission Date: 20041129
  Serious: Yes (Hospitalization)
  Sender: FDA-Public Use
  Company Number: 04P-163-0250723-00

PATIENT
  Age: 39 Year
  Sex: Male
  Weight: 95.2554 kg

DRUGS (2)
  1. DEPAKOTE ER [Suspect]
     Indication: DEPRESSION
     Dosage: 250 MG, 2 IN 1 D, PER ORAL
     Route: 048
     Dates: start: 20030201
  2. VENLAFAXINE HCL [Suspect]
     Indication: DEPRESSION
     Dosage: 150 MG, 1 IN 1 D, PER ORAL
     Route: 048
     Dates: start: 20030201

REACTIONS (6)
  - ANKLE FRACTURE [None]
  - GASTROINTESTINAL HAEMORRHAGE [None]
  - HEPATIC TRAUMA [None]
  - LOSS OF CONSCIOUSNESS [None]
  - RIB FRACTURE [None]
  - ROAD TRAFFIC ACCIDENT [None]
